FAERS Safety Report 4829175-7 (Version None)
Quarter: 2005Q4

REPORT INFORMATION
  Report Type: 
  Country: None (occurrence: None)
  Receive Date: 20051028
  Receipt Date: 20050713
  Transmission Date: 20060501
  Serious: No
  Sender: FDA-Public Use
  Company Number: COT_0142_2005

PATIENT
  Age: 17 Year
  Sex: Female
  Weight: 74.1178 kg

DRUGS (16)
  1. VENTAVIS [Suspect]
     Indication: PULMONARY HYPERTENSION
     Dosage: 2.5 MCG ONCE IH
     Route: 055
     Dates: start: 20050712, end: 20050712
  2. VENTAVIS [Suspect]
     Indication: PULMONARY HYPERTENSION
     Dosage: 5 MCG ONCE IH
     Route: 055
     Dates: start: 20050712, end: 20050712
  3. VENTAVIS [Suspect]
     Indication: PULMONARY HYPERTENSION
     Dosage: 2.5 MCG 4 X DAY IH
     Route: 055
     Dates: start: 20050712, end: 20050719
  4. VENTAVIS [Suspect]
     Indication: PULMONARY HYPERTENSION
     Dosage: 2.5 MCG 6XD IH
     Route: 055
     Dates: start: 20050719
  5. VENTAVIS [Suspect]
     Indication: PULMONARY HYPERTENSION
     Dosage: 5 MCG 4 X DAY IH
     Route: 055
     Dates: start: 20050726
  6. VENTAVIS [Suspect]
     Indication: PULMONARY HYPERTENSION
     Dosage: 5 MCG IH
     Route: 055
  7. TRACLEER [Concomitant]
  8. CELLCEPT [Concomitant]
  9. PLAQUENIL [Concomitant]
  10. CALCITRIOL [Concomitant]
  11. LASIX [Concomitant]
  12. MULTI-VITAMINS [Concomitant]
  13. COUMADIN [Concomitant]
  14. ADVAIR DISKUS 100/50 [Concomitant]
  15. DIGOXIN [Concomitant]
  16. PREDNISONE [Concomitant]

REACTIONS (3)
  - COUGH [None]
  - DIZZINESS [None]
  - HEADACHE [None]
